FAERS Safety Report 26020105 (Version 1)
Quarter: 2025Q4

REPORT INFORMATION
  Report Type: Spontaneous
  Country: US (occurrence: US)
  Receive Date: 20251110
  Receipt Date: 20251110
  Transmission Date: 20260118
  Serious: No
  Sender: GALPHARM INTERNATIONAL
  Company Number: US-PERRIGO-25US004365

PATIENT
  Age: 34 Year
  Sex: Female

DRUGS (2)
  1. POLYETHYLENE GLYCOL 3350 [Suspect]
     Active Substance: POLYETHYLENE GLYCOL 3350
     Indication: Infrequent bowel movements
     Dosage: 102 G-119 G, QD
     Route: 048
     Dates: start: 20091006, end: 20250331
  2. POLYETHYLENE GLYCOL 3350 [Suspect]
     Active Substance: POLYETHYLENE GLYCOL 3350
     Dosage: 102 G-119 G, QD
     Route: 048
     Dates: start: 20250401

REACTIONS (3)
  - Incorrect product administration duration [Unknown]
  - Product preparation issue [Unknown]
  - Product use in unapproved indication [Unknown]

NARRATIVE: CASE EVENT DATE: 20091006
